FAERS Safety Report 20012864 (Version 2)
Quarter: 2021Q4

REPORT INFORMATION
  Report Type: Spontaneous
  Country: CA (occurrence: CA)
  Receive Date: 20211029
  Receipt Date: 20211102
  Transmission Date: 20220303
  Serious: Yes (Other)
  Sender: FDA-Public Use
  Company Number: CA-EYEVANCE PHARMACEUTICALS-2021EYE00314

PATIENT
  Age: 80 Year
  Sex: Male

DRUGS (10)
  1. FLUOROMETHOLONE [Suspect]
     Active Substance: FLUOROMETHOLONE
     Dosage: UNK, 4X/DAY
  2. LEFLUNOMIDE [Suspect]
     Active Substance: LEFLUNOMIDE
     Dosage: 20 MG, 1X/DAY
     Route: 048
  3. OLOPATADINE [Suspect]
     Active Substance: OLOPATADINE
     Dosage: UNK, 1X/DAY
  4. INVOKANA [Concomitant]
     Active Substance: CANAGLIFLOZIN
  5. JANUMET [Concomitant]
     Active Substance: METFORMIN HYDROCHLORIDE\SITAGLIPTIN PHOSPHATE
  6. CELEBREX [Concomitant]
     Active Substance: CELECOXIB
  7. SULFASALAZINE [Concomitant]
     Active Substance: SULFASALAZINE
  8. LIPITOR [Concomitant]
     Active Substance: ATORVASTATIN CALCIUM
  9. DOXYCYCLINE [Concomitant]
     Active Substance: DOXYCYCLINE
  10. METROGEL [Concomitant]
     Active Substance: METRONIDAZOLE

REACTIONS (2)
  - Psoriatic arthropathy [Unknown]
  - Psoriasis [Unknown]
